FAERS Safety Report 7575040-4 (Version None)
Quarter: 2011Q2

REPORT INFORMATION
  Report Type: 
  Country: None (occurrence: None)
  Receive Date: 20110627
  Receipt Date: 20110616
  Transmission Date: 20111010
  Serious: Yes (Hospitalization)
  Sender: FDA-Public Use
  Company Number: US-ASTRAZENECA-2011SE37078

PATIENT
  Age: 60 Year
  Sex: Female

DRUGS (3)
  1. PULMICORT [Suspect]
     Indication: ASTHMA
     Route: 055
     Dates: start: 20070101, end: 20110401
  2. PULMICORT [Suspect]
     Route: 055
     Dates: start: 20110607
  3. ADVAIR DISKUS 100/50 [Concomitant]

REACTIONS (2)
  - DYSPNOEA [None]
  - DRUG PRESCRIBING ERROR [None]
